FAERS Safety Report 6274387-1 (Version None)
Quarter: 2009Q3

REPORT INFORMATION
  Report Type: 
  Country: None (occurrence: None)
  Receive Date: 20090720
  Receipt Date: 20090708
  Transmission Date: 20100115
  Serious: Yes (Other)
  Sender: FDA-Public Use
  Company Number: US-SANOFI-SYNTHELABO-A03200902282

PATIENT
  Sex: Female
  Weight: 85.7 kg

DRUGS (6)
  1. AMBIEN CR [Suspect]
     Indication: INSOMNIA
     Route: 048
     Dates: start: 20051117, end: 20061201
  2. VALIUM [Concomitant]
     Indication: ANXIETY
     Dosage: 5MG AS NEEDED 2X PER WEEK
     Route: 048
     Dates: start: 20041223
  3. SEROQUEL [Concomitant]
     Indication: AFFECTIVE DISORDER
     Route: 048
     Dates: start: 20060113
  4. GEODON [Concomitant]
     Indication: AFFECTIVE DISORDER
     Route: 048
     Dates: start: 20050427
  5. GEODON [Concomitant]
     Route: 048
     Dates: start: 20050427
  6. LAMICTAL [Concomitant]
     Indication: AFFECTIVE DISORDER
     Route: 048
     Dates: start: 20050114

REACTIONS (5)
  - AMNESIA [None]
  - BACK INJURY [None]
  - NECK INJURY [None]
  - ROAD TRAFFIC ACCIDENT [None]
  - SOMNAMBULISM [None]
